FAERS Safety Report 8048678-8 (Version None)
Quarter: 2012Q1

REPORT INFORMATION
  Report Type: 
  Country: None (occurrence: None)
  Receive Date: 20120110
  Receipt Date: 20111229
  Transmission Date: 20120608
  Serious: Yes (Hospitalization, Other)
  Sender: FDA-Public Use
  Company Number: 08-AUR-02251

PATIENT
  Age: 71 Year
  Sex: Female

DRUGS (1)
  1. METFORMIN HCL [Suspect]
     Indication: TYPE 2 DIABETES MELLITUS
     Dosage: 1500 MG (500 MG, 3 IN 1 D), ORAL
     Route: 048

REACTIONS (18)
  - RENAL FAILURE ACUTE [None]
  - HYPOPHAGIA [None]
  - SOMNOLENCE [None]
  - TACHYCARDIA [None]
  - HAEMODIALYSIS [None]
  - TACHYPNOEA [None]
  - LACTIC ACIDOSIS [None]
  - BLOOD URINE PRESENT [None]
  - BLOOD GLUCOSE INCREASED [None]
  - MALAISE [None]
  - PROTEIN URINE PRESENT [None]
  - HYPOTENSION [None]
  - FALL [None]
  - CONFUSIONAL STATE [None]
  - DEHYDRATION [None]
  - DYSPHAGIA [None]
  - WEIGHT DECREASED [None]
  - DEPRESSED LEVEL OF CONSCIOUSNESS [None]
